FAERS Safety Report 4872146-5 (Version None)
Quarter: 2005Q4

REPORT INFORMATION
  Report Type: 
  Country: None (occurrence: None)
  Receive Date: 20051230
  Receipt Date: 20051223
  Transmission Date: 20060501
  Serious: Yes (Hospitalization)
  Sender: FDA-Public Use
  Company Number: 163-20785-05120452

PATIENT
  Age: 66 Year
  Sex: Female

DRUGS (1)
  1. THALIDOMIDE (THALIDOMIDE) (50 MILLIGRAM, CAPSULES) [Suspect]
     Indication: MULTIPLE MYELOMA
     Dosage: 100  MG, DAILY, ORAL
     Route: 048
     Dates: start: 20050101, end: 20050301

REACTIONS (4)
  - CEREBROVASCULAR ACCIDENT [None]
  - DIVERTICULAR PERFORATION [None]
  - PAIN [None]
  - RENAL FAILURE [None]
